FAERS Safety Report 7393767-4 (Version None)
Quarter: 2011Q1

REPORT INFORMATION
  Report Type: 
  Country: None (occurrence: None)
  Receive Date: 20110330
  Receipt Date: 20110330
  Transmission Date: 20110831
  Serious: Yes (Death)
  Sender: FDA-Public Use
  Company Number: None

PATIENT
  Age: 40 Year
  Sex: Male

DRUGS (8)
  1. SENSIPAR [Concomitant]
  2. GABAPENTIN [Concomitant]
  3. TRAMADOL [Concomitant]
  4. ZOLPIDEM [Concomitant]
  5. CEFAZOLIN [Suspect]
     Indication: PROPHYLAXIS
     Dosage: 1GM ONCE IV BOLUS
     Route: 040
     Dates: start: 20101102, end: 20101102
  6. METOPROLOL TARTRATE [Concomitant]
  7. OMEPRAZOLE [Concomitant]
  8. FOSRENOL [Concomitant]

REACTIONS (3)
  - BRADYCARDIA [None]
  - CONVULSION [None]
  - CARDIAC ARREST [None]
